FAERS Safety Report 9055448 (Version 2)
Quarter: 2013Q1

REPORT INFORMATION
  Report Type: Spontaneous
  Country: IT (occurrence: IT)
  Receive Date: 20130206
  Receipt Date: 20130304
  Transmission Date: 20140127
  Serious: Yes (Hospitalization)
  Sender: FDA-Public Use
  Company Number: IT-PFIZER INC-2013048232

PATIENT
  Age: 80 Year
  Sex: Female

DRUGS (9)
  1. LYRICA [Suspect]
     Indication: PAIN
     Dosage: 600 MG, TOTAL DOSE
     Route: 048
     Dates: start: 20130117, end: 20130117
  2. PRAZEPAM [Suspect]
     Indication: PAIN
     Dosage: 80 MG, TOTAL DOSE
     Route: 048
     Dates: start: 20130117, end: 20130117
  3. CO-EFFERALGAN [Suspect]
     Indication: PAIN
     Dosage: 4 UNITS DOSE TOTAL
     Route: 048
     Dates: start: 20130117, end: 20130117
  4. PARIET [Concomitant]
  5. LASIX [Concomitant]
  6. ADALAT [Concomitant]
  7. ENAPREN [Concomitant]
     Indication: HYPERTENSION
  8. CARDURA [Concomitant]
  9. CARDIOASPIRIN [Concomitant]

REACTIONS (4)
  - Coma [Recovering/Resolving]
  - Respiratory failure [Recovering/Resolving]
  - Long QT syndrome [Recovering/Resolving]
  - Cardiac enzymes increased [Recovering/Resolving]
